FAERS Safety Report 10609830 (Version 1)
Quarter: 2014Q4

REPORT INFORMATION
  Report Type: Spontaneous
  Country: RU (occurrence: None)
  Receive Date: 20141124
  Receipt Date: 20141124
  Transmission Date: 20150529
  Serious: Yes (Hospitalization)
  Sender: FDA-Public Use
  Company Number: RU2014GSK023228

PATIENT
  Sex: Female

DRUGS (9)
  1. LAMIVUDINE (LAMIVUDINE) UNKNOWN [Suspect]
     Active Substance: LAMIVUDINE
     Indication: HIV INFECTION
     Dates: start: 2013
  2. STOCRIN [Suspect]
     Active Substance: EFAVIRENZ
     Indication: HIV INFECTION
     Dates: start: 2013, end: 2013
  3. ISENTRESS [Suspect]
     Active Substance: RALTEGRAVIR POTASSIUM
     Indication: HIV INFECTION
     Dates: start: 20141112
  4. NEVIRAPINE (NEVIRAPINE) [Suspect]
     Active Substance: NEVIRAPINE
     Indication: HIV INFECTION
     Dates: start: 2013
  5. KALETRA [Suspect]
     Active Substance: LOPINAVIR\RITONAVIR
     Indication: HIV INFECTION
     Dates: start: 201410, end: 201411
  6. COMBIVIR [Suspect]
     Active Substance: LAMIVUDINE\ZIDOVUDINE
     Indication: HIV INFECTION
     Dates: start: 2013, end: 2013
  7. ZIAGEN [Suspect]
     Active Substance: ABACAVIR SULFATE
     Indication: HIV INFECTION
     Dates: start: 201410
  8. VIDEX [Suspect]
     Active Substance: DIDANOSINE
     Indication: HIV INFECTION
     Dates: start: 201409, end: 201410
  9. ZIDOVUDINE (ZIDOVUDINE) [Suspect]
     Active Substance: ZIDOVUDINE
     Indication: HIV INFECTION
     Dates: start: 2013

REACTIONS (13)
  - Nightmare [None]
  - Haemoglobin decreased [None]
  - Hallucination [None]
  - Dry mouth [None]
  - Genital tract inflammation [None]
  - Sensation of foreign body [None]
  - Diarrhoea [None]
  - Drug ineffective [None]
  - Throat irritation [None]
  - Erythema [None]
  - Haemorrhoids [None]
  - Respiratory disorder [None]
  - Swelling face [None]

NARRATIVE: CASE EVENT DATE: 2013
